FAERS Safety Report 5379171-9 (Version None)
Quarter: 2007Q3

REPORT INFORMATION
  Report Type: 
  Country: None (occurrence: None)
  Receive Date: 20070705
  Receipt Date: 20070625
  Transmission Date: 20080115
  Serious: Yes (Other)
  Sender: FDA-Public Use
  Company Number: TW-BRISTOL-MYERS SQUIBB COMPANY-13825344

PATIENT
  Age: 35 Year
  Sex: Female

DRUGS (2)
  1. ARIPIPRAZOLE [Suspect]
     Indication: SCHIZOPHRENIA
     Dosage: DOSE INCR TO 30MG/D AFTER 1 MONTH ON 10MG/D
  2. LAMICTAL [Suspect]
     Indication: SCHIZOPHRENIA
     Dosage: INITIAL DOSE 12.5MG/D INCR TO 25MG/D IN SECOND WEEK

REACTIONS (2)
  - DRUG INEFFECTIVE [None]
  - STEVENS-JOHNSON SYNDROME [None]
